FAERS Safety Report 19466302 (Version 1)
Quarter: 2021Q2

REPORT INFORMATION
  Report Type: Spontaneous
  Country: US (occurrence: US)
  Receive Date: 20210625
  Receipt Date: 20210625
  Transmission Date: 20210717
  Serious: Yes (Other)
  Sender: FDA-Public Use
  Company Number: US-ENDO PHARMACEUTICALS INC-2021-002253

PATIENT
  Age: 77 Year
  Sex: Female

DRUGS (6)
  1. RANITIDINE. [Suspect]
     Active Substance: RANITIDINE
     Indication: ABDOMINAL DISCOMFORT
     Dosage: UNK UNKNOWN, DAILY
     Route: 065
     Dates: start: 201001, end: 201201
  2. RANITIDINE HYDROCHLORIDE. [Suspect]
     Active Substance: RANITIDINE HYDROCHLORIDE
     Indication: ABDOMINAL DISCOMFORT
     Dosage: 150 MG, DAILY
     Route: 065
     Dates: start: 201001, end: 201201
  3. RANITIDINE. [Suspect]
     Active Substance: RANITIDINE
     Indication: ABDOMINAL DISCOMFORT
     Dosage: 150 MG, DAILY
     Route: 065
     Dates: start: 201001, end: 201201
  4. ZANTAC [Suspect]
     Active Substance: RANITIDINE HYDROCHLORIDE
     Indication: ABDOMINAL DISCOMFORT
     Dosage: 150 MG, DAILY
     Route: 065
     Dates: start: 201001, end: 201201
  5. ZANTAC [Suspect]
     Active Substance: RANITIDINE HYDROCHLORIDE
     Indication: ABDOMINAL DISCOMFORT
     Dosage: 150 MG, DAILY
     Route: 065
     Dates: start: 201001, end: 201201
  6. RANITIDINE. [Suspect]
     Active Substance: RANITIDINE
     Indication: ABDOMINAL DISCOMFORT
     Dosage: UNKUNK UNKNOWN, DAILY
     Dates: start: 201001, end: 201201

REACTIONS (1)
  - Breast cancer stage I [Recovering/Resolving]

NARRATIVE: CASE EVENT DATE: 20180101
